FAERS Safety Report 8907483 (Version 1)
Quarter: 2012Q4

REPORT INFORMATION
  Report Type: 
  Country: BR (occurrence: BR)
  Receive Date: 20121114
  Receipt Date: 20121114
  Transmission Date: 20130627
  Serious: Yes (Hospitalization)
  Sender: FDA-Public Use
  Company Number: BR-SANOFI-AVENTIS-2012SA082407

PATIENT
  Age: 28 Year
  Sex: Female
  Weight: 60 kg

DRUGS (3)
  1. APIDRA [Suspect]
     Indication: TYPE I DIABETES MELLITUS
     Dosage: 36IU + according to glycaemia QD, second therapy ongoing
strength: 100IU/mL
     Route: 058
     Dates: start: 2010, end: 201211
  2. INSULIN PUMP [Concomitant]
     Indication: DEVICE THERAPY
     Route: 058
  3. SIMVASTATIN [Concomitant]
     Indication: CHOLESTEROL
     Route: 048

REACTIONS (2)
  - Urinary tract infection [Unknown]
  - Hyperglycaemia [Recovered/Resolved]
